FAERS Safety Report 5371410-3 (Version None)
Quarter: 2007Q2

REPORT INFORMATION
  Report Type: 
  Country: None (occurrence: None)
  Receive Date: 20070615
  Receipt Date: 20070219
  Transmission Date: 20071010
  Serious: Yes (Other)
  Sender: FDA-Public Use
  Company Number: 200615312US

PATIENT
  Age: 55 Year
  Sex: Male

DRUGS (5)
  1. LANTUS [Suspect]
     Indication: DIABETES MELLITUS NON-INSULIN-DEPENDENT
     Dosage: 30 U QD
     Dates: start: 20060108
  2. OPTICLIK [Suspect]
     Indication: DIABETES MELLITUS NON-INSULIN-DEPENDENT
     Dates: start: 20060108
  3. HYDROCHLOROTHIAZIDE, OLMESARTAN MEDOXOMIL (BENICAR HCT) [Concomitant]
  4. ATORVASTATIN CALCIUM (LIPITOR) [Concomitant]
  5. ASPIRIN [Concomitant]

REACTIONS (1)
  - HYPERGLYCAEMIA [None]
